FAERS Safety Report 10486410 (Version 1)
Quarter: 2014Q3

REPORT INFORMATION
  Report Type: Spontaneous
  Country: GB (occurrence: None)
  Receive Date: 20140929
  Receipt Date: 20140929
  Transmission Date: 20150326
  Serious: Yes (Other)
  Sender: FDA-Public Use
  Company Number: 2014259405

PATIENT
  Age: 66 Year
  Sex: Female

DRUGS (2)
  1. DALTEPARIN SODIUM (DALTEPARIN SODIUM) UNKNOWN [Suspect]
     Active Substance: DALTEPARIN SODIUM
     Dosage: UNK
  2. WARFARIN [Concomitant]
     Active Substance: WARFARIN

REACTIONS (2)
  - International normalised ratio abnormal [None]
  - Drug dose omission [None]
